FAERS Safety Report 17292383 (Version 1)
Quarter: 2020Q1

REPORT INFORMATION
  Report Type: Spontaneous
  Country: US (occurrence: US)
  Receive Date: 20200121
  Receipt Date: 20200121
  Transmission Date: 20200409
  Serious: No
  Sender: FDA-Public Use
  Company Number: US-BRISTOL-MYERS SQUIBB COMPANY-BMS-2020-004453

PATIENT

DRUGS (1)
  1. OPDIVO [Suspect]
     Active Substance: NIVOLUMAB
     Indication: PRODUCT USED FOR UNKNOWN INDICATION
     Dosage: ONE 100 MG/10ML VIAL, THREE OF THE 40 MG/4ML VIALS (ABH2011)EXPIRATION DATE FOR EACH VIAL: 31-MAR-20
     Route: 065

REACTIONS (1)
  - Product preparation error [Unknown]
